FAERS Safety Report 7121679-X (Version None)
Quarter: 2010Q4

REPORT INFORMATION
  Report Type: 
  Country: None (occurrence: None)
  Receive Date: 20101124
  Receipt Date: 20101115
  Transmission Date: 20110411
  Serious: No
  Sender: FDA-Public Use
  Company Number: US-PFIZER INC-2010151739

PATIENT
  Age: 52 Year
  Sex: Male

DRUGS (1)
  1. GLUCOTROL [Suspect]

REACTIONS (1)
  - BLOOD GLUCOSE INCREASED [None]
